FAERS Safety Report 14651347 (Version 3)
Quarter: 2018Q2

REPORT INFORMATION
  Report Type: Spontaneous
  Country: DE (occurrence: DE)
  Receive Date: 20180316
  Receipt Date: 20180430
  Transmission Date: 20180711
  Serious: Yes (Death, Life-Threatening, Hospitalization, Other)
  Sender: FDA-Public Use
  Company Number: DE-009507513-1803DEU006050

PATIENT
  Age: 85 Year
  Sex: Male

DRUGS (2)
  1. KEYTRUDA [Suspect]
     Active Substance: PEMBROLIZUMAB
     Indication: TRANSITIONAL CELL CARCINOMA
     Dosage: 200 MG, UNK
     Dates: start: 20170925, end: 20171127
  2. KEYTRUDA [Suspect]
     Active Substance: PEMBROLIZUMAB
     Indication: METASTATIC NEOPLASM

REACTIONS (6)
  - Malignant neoplasm progression [Fatal]
  - Asthenia [Unknown]
  - Product use in unapproved indication [Unknown]
  - Gait inability [Unknown]
  - Fatigue [Fatal]
  - Listless [Unknown]

NARRATIVE: CASE EVENT DATE: 201709
